FAERS Safety Report 5395163-8 (Version None)
Quarter: 2007Q3

REPORT INFORMATION
  Report Type: 
  Country: None (occurrence: None)
  Receive Date: 20070724
  Receipt Date: 20070713
  Transmission Date: 20080115
  Serious: Yes (Other)
  Sender: FDA-Public Use
  Company Number: US-JNJFOC-20070306895

PATIENT
  Age: 65 Year
  Sex: Female
  Weight: 69.4 kg

DRUGS (37)
  1. REMICADE [Suspect]
     Route: 042
  2. REMICADE [Suspect]
     Route: 042
  3. REMICADE [Suspect]
     Route: 042
  4. REMICADE [Suspect]
     Route: 042
  5. REMICADE [Suspect]
     Route: 042
  6. REMICADE [Suspect]
     Route: 042
  7. REMICADE [Suspect]
     Route: 042
  8. REMICADE [Suspect]
     Indication: PSORIATIC ARTHROPATHY
     Route: 042
  9. LEXAPRO [Concomitant]
  10. GLYBURIDE [Concomitant]
  11. GLYBURIDE [Concomitant]
  12. SYNTHROID [Concomitant]
     Dosage: .112 MCG MWFS  0.1 MCG T TH S
  13. TRIAMTERENE AND HYDROCHLOROTHIAZIDE [Concomitant]
     Dosage: 75/50 MG 1/2 TAB
  14. ZETIA [Concomitant]
  15. LOPID [Concomitant]
  16. CARTIA XT [Concomitant]
  17. SINGULAIR [Concomitant]
  18. ALLEGRA [Concomitant]
  19. CLONAZEPAN [Concomitant]
     Dosage: 0.5 MG 1/4 PO TID
     Route: 048
  20. CELEXA [Concomitant]
  21. FOLIC ACID [Concomitant]
  22. PROTINIX [Concomitant]
  23. SELENIUM SULFIDE [Concomitant]
  24. CALCIUM CHLORIDE [Concomitant]
     Dosage: ^1600^
  25. VITAMIN D [Concomitant]
  26. SOLU-MEDROL [Concomitant]
     Route: 042
  27. SOLU-MEDROL [Concomitant]
     Route: 042
  28. SOLU-MEDROL [Concomitant]
     Route: 042
  29. SOLU-MEDROL [Concomitant]
     Route: 042
  30. SOLU-MEDROL [Concomitant]
     Route: 042
  31. SOLU-MEDROL [Concomitant]
     Route: 042
  32. SOLU-MEDROL [Concomitant]
     Route: 042
  33. SOLU-MEDROL [Concomitant]
     Route: 042
  34. LIPITOR [Concomitant]
  35. EVISTA [Concomitant]
  36. ADVICOR [Concomitant]
  37. METFORMIN HCL [Concomitant]

REACTIONS (3)
  - BREAST MICROCALCIFICATION [None]
  - HEPATOMEGALY [None]
  - RENAL CYST [None]
